FAERS Safety Report 21180539 (Version 1)
Quarter: 2022Q3

REPORT INFORMATION
  Report Type: Spontaneous
  Country: US (occurrence: US)
  Receive Date: 20220806
  Receipt Date: 20220806
  Transmission Date: 20221027
  Serious: Yes (Hospitalization)
  Sender: FDA-Public Use
  Company Number: US-TEVA-2022-US-2060590

PATIENT
  Age: 40 Year
  Sex: Male

DRUGS (3)
  1. LORAZEPAM [Suspect]
     Active Substance: LORAZEPAM
     Indication: Neuroleptic malignant syndrome
     Route: 065
     Dates: start: 2018
  2. LORAZEPAM [Suspect]
     Active Substance: LORAZEPAM
     Dosage: 24 MILLIGRAM DAILY;
     Route: 065
  3. LORAZEPAM [Suspect]
     Active Substance: LORAZEPAM
     Dosage: 48 MILLIGRAM DAILY;
     Route: 065

REACTIONS (6)
  - Hospitalisation [Unknown]
  - Exposure to allergen [Unknown]
  - Drug ineffective [Unknown]
  - Drug effect less than expected [Unknown]
  - Product prescribing issue [Unknown]
  - Product use issue [Unknown]

NARRATIVE: CASE EVENT DATE: 20190101
